FAERS Safety Report 15120537 (Version 2)
Quarter: 2018Q3

REPORT INFORMATION
  Report Type: Report from Study
  Country: US (occurrence: US)
  Receive Date: 20180709
  Receipt Date: 20180716
  Transmission Date: 20181010
  Serious: No
  Sender: FDA-Public Use
  Company Number: US-AMGEN-USASL2018091222

PATIENT
  Age: 55 Year
  Sex: Female

DRUGS (1)
  1. ENBREL [Suspect]
     Active Substance: ETANERCEPT
     Indication: RHEUMATOID ARTHRITIS
     Dosage: 50 MG, QWK
     Route: 065
     Dates: start: 20180622

REACTIONS (5)
  - Pruritus generalised [Unknown]
  - Hypersensitivity [Unknown]
  - Urticaria [Not Recovered/Not Resolved]
  - Blood cholesterol increased [Unknown]
  - Injection site erythema [Unknown]

NARRATIVE: CASE EVENT DATE: 2018
